FAERS Safety Report 8386080-X (Version None)
Quarter: 2012Q2

REPORT INFORMATION
  Report Type: 
  Country: None (occurrence: None)
  Receive Date: 20120525
  Receipt Date: 20120516
  Transmission Date: 20120825
  Serious: Yes (Other)
  Sender: FDA-Public Use
  Company Number: JP-VERTEX PHARMACEUTICALS INC.-AE-2012-007472

PATIENT
  Age: 43 Year
  Sex: Female

DRUGS (5)
  1. REBETOL [Concomitant]
     Indication: HEPATITIS C
     Route: 048
     Dates: start: 20120403
  2. PREDNISOLONE [Concomitant]
     Indication: VIITH NERVE PARALYSIS
     Route: 048
     Dates: start: 20120420
  3. TELAVIC (TELAPREVIR) [Suspect]
     Indication: HEPATITIS C
     Route: 048
     Dates: start: 20120403
  4. MUCOSTA [Concomitant]
     Route: 048
     Dates: start: 20120407
  5. PEG-INTRON [Concomitant]
     Indication: HEPATITIS C
     Route: 051
     Dates: start: 20120403

REACTIONS (1)
  - VIITH NERVE PARALYSIS [None]
